FAERS Safety Report 4429694-1 (Version None)
Quarter: 2004Q3

REPORT INFORMATION
  Report Type: 
  Country: None (occurrence: None)
  Receive Date: 20040816
  Receipt Date: 20040803
  Transmission Date: 20050211
  Serious: Yes (Other)
  Sender: FDA-Public Use
  Company Number: 2004053311

PATIENT
  Age: 65 Year
  Sex: Female

DRUGS (4)
  1. LIPITOR [Suspect]
     Indication: ILL-DEFINED DISORDER
     Dosage: 10 MG (10 MG ) ORAL
     Route: 048
  2. CLOZAPINE [Suspect]
     Indication: ILL-DEFINED DISORDER
     Dosage: 125 MG (125 MG, 1 IN  1 D), ORAL
     Route: 048
  3. FUROSEMIDE [Concomitant]
  4. LEVOTHYROXINE SODIUM [Concomitant]

REACTIONS (2)
  - CONVULSION [None]
  - RHABDOMYOLYSIS [None]
